FAERS Safety Report 11449260 (Version 1)
Quarter: 2015Q3

REPORT INFORMATION
  Report Type: Report from Study
  Country: UG (occurrence: UG)
  Receive Date: 20150902
  Receipt Date: 20150902
  Transmission Date: 20151125
  Serious: Yes (Other)
  Sender: FDA-Public Use
  Company Number: UG-ABBVIE-15P-165-1454544-00

PATIENT
  Age: 35 Year
  Sex: Female

DRUGS (4)
  1. SUSTIVA [Suspect]
     Active Substance: EFAVIRENZ
     Indication: HIV INFECTION
     Dosage: ONE COURSE, PRIOR TO CONCEPTION, 1ST TRIMESTER EARLIEST EXPOSURE
     Route: 048
     Dates: start: 20071008, end: 20080904
  2. KALETRA [Suspect]
     Active Substance: LOPINAVIR\RITONAVIR
     Indication: HIV INFECTION
     Dosage: ONE COURSE, PRIOR TO CONCEPTION, 1ST TRIMESTER EARLIEST EXPOSURE
     Route: 048
     Dates: start: 20070828
  3. EPIVIR [Suspect]
     Active Substance: LAMIVUDINE
     Indication: HIV INFECTION
     Dosage: ONE COURSE, PRIOR TO CONCEPTION, 1ST TRIMESTER EARLIEST EXPOSURE
     Route: 048
     Dates: start: 20070828
  4. VIREAD [Suspect]
     Active Substance: TENOFOVIR DISOPROXIL FUMARATE
     Indication: HIV INFECTION
     Dosage: ONE COURSE, PRIOR TO CONCEPTION, 1ST TRIMESTER EARLIEST EXPOSURE
     Route: 048
     Dates: start: 20080904

REACTIONS (2)
  - Stillbirth [Unknown]
  - Exposure during pregnancy [Unknown]

NARRATIVE: CASE EVENT DATE: 20081101
